FAERS Safety Report 9753121 (Version 1)
Quarter: 2013Q4

REPORT INFORMATION
  Report Type: Spontaneous
  Country: US (occurrence: None)
  Receive Date: 20131211
  Receipt Date: 20131211
  Transmission Date: 20140711
  Serious: Yes (Death, Hospitalization)
  Sender: FDA-Public Use
  Company Number: B0951451A

PATIENT
  Age: 72 Year
  Sex: Male

DRUGS (2)
  1. PAZOPANIB [Suspect]
     Indication: METASTATIC RENAL CELL CARCINOMA
  2. SORAFENIB (SORAFENIB) (SORAFENIB) [Suspect]
     Indication: METASTATIC RENAL CELL CARCINOMA

REACTIONS (9)
  - Hyperhidrosis [None]
  - Decreased appetite [None]
  - Fatigue [None]
  - Diarrhoea [None]
  - Confusional state [None]
  - Thyroid function test abnormal [None]
  - Atrial fibrillation [None]
  - Cardiac arrest [None]
  - Aspiration [None]
